FAERS Safety Report 12341678 (Version 1)
Quarter: 2016Q2

REPORT INFORMATION
  Report Type: Spontaneous
  Country: JP (occurrence: JP)
  Receive Date: 20160506
  Receipt Date: 20160506
  Transmission Date: 20160815
  Serious: Yes (Other)
  Sender: FDA-Public Use
  Company Number: JP-BAYER-2016-080893

PATIENT
  Sex: Female

DRUGS (1)
  1. STIVARGA [Suspect]
     Active Substance: REGORAFENIB
     Indication: COLON CANCER
     Dosage: 160 MG, QD
     Route: 048
     Dates: start: 20160420, end: 20160426

REACTIONS (2)
  - Hyperlipasaemia [Not Recovered/Not Resolved]
  - Hyperamylasaemia [Not Recovered/Not Resolved]

NARRATIVE: CASE EVENT DATE: 20160426
